FAERS Safety Report 17777269 (Version 1)
Quarter: 2020Q2

REPORT INFORMATION
  Report Type: Spontaneous
  Country: US (occurrence: US)
  Receive Date: 20200513
  Receipt Date: 20200513
  Transmission Date: 20200714
  Serious: No
  Sender: FDA-Public Use
  Company Number: US-TORRENT-00007986

PATIENT
  Age: 69 Year
  Sex: Female

DRUGS (2)
  1. ATROVASTATIN [Concomitant]
     Active Substance: ATORVASTATIN CALCIUM
     Indication: BLOOD CHOLESTEROL INCREASED
     Dosage: UNKNOWN
  2. LOSARTAN AND HYDROCHLOROTHIAZIDE [Suspect]
     Active Substance: HYDROCHLOROTHIAZIDE\LOSARTAN POTASSIUM
     Indication: HYPERTENSION
     Dosage: 3-4 YEARS

REACTIONS (4)
  - Weight decreased [Unknown]
  - Jaundice [Unknown]
  - Glycosylated haemoglobin increased [Unknown]
  - Blood triglycerides increased [Unknown]
